FAERS Safety Report 13655095 (Version 1)
Quarter: 2017Q2

REPORT INFORMATION
  Report Type: Spontaneous
  Country: US (occurrence: US)
  Receive Date: 20170614
  Receipt Date: 20170614
  Transmission Date: 20170830
  Serious: Yes (Hospitalization)
  Sender: FDA-Public Use
  Company Number: None

PATIENT
  Age: 74 Year
  Sex: Male

DRUGS (1)
  1. CLOPIDOGREL [Suspect]
     Active Substance: CLOPIDOGREL BISULFATE
     Indication: CORONARY ARTERIAL STENT INSERTION
     Dates: start: 20160505

REACTIONS (4)
  - Haemoglobin decreased [None]
  - Haematocrit decreased [None]
  - Haemorrhage [None]
  - Hypovolaemia [None]

NARRATIVE: CASE EVENT DATE: 20170126
